FAERS Safety Report 5851951-2 (Version None)
Quarter: 2008Q3

REPORT INFORMATION
  Report Type: 
  Country: None (occurrence: None)
  Receive Date: 20080819
  Receipt Date: 20080804
  Transmission Date: 20090109
  Serious: Yes (Hospitalization, Disabling)
  Sender: FDA-Public Use
  Company Number: 2008S1013810

PATIENT
  Age: 43 Year
  Sex: Female

DRUGS (1)
  1. ATENOLOL [Suspect]
     Indication: MIGRAINE
     Dosage: 25 MG; AT BEDTIME; ORAL
     Route: 048
     Dates: start: 20051219, end: 20051229

REACTIONS (27)
  - ANOREXIA [None]
  - APPARENT DEATH [None]
  - ASTHENIA [None]
  - CHEST DISCOMFORT [None]
  - DYSPHONIA [None]
  - DYSPNOEA [None]
  - FEELING ABNORMAL [None]
  - HAEMOPTYSIS [None]
  - HEART RATE IRREGULAR [None]
  - HYPOAESTHESIA [None]
  - INAPPROPRIATE SCHEDULE OF DRUG ADMINISTRATION [None]
  - NASAL OEDEMA [None]
  - PAIN IN EXTREMITY [None]
  - PALPITATIONS [None]
  - PARAESTHESIA [None]
  - PERFORMANCE STATUS DECREASED [None]
  - PHARYNGEAL OEDEMA [None]
  - PYREXIA [None]
  - RHINORRHOEA [None]
  - SWELLING FACE [None]
  - TONGUE DISORDER [None]
  - VASCULAR INJURY [None]
  - VASCULITIS [None]
  - VISUAL IMPAIRMENT [None]
  - WEGENER'S GRANULOMATOSIS [None]
  - WHEEZING [None]
  - WITHDRAWAL SYNDROME [None]
